FAERS Safety Report 16470273 (Version 1)
Quarter: 2019Q2

REPORT INFORMATION
  Report Type: Spontaneous
  Country: US (occurrence: US)
  Receive Date: 20190514
  Receipt Date: 20190514
  Transmission Date: 20190711
  Serious: Yes (Death)
  Sender: FDA-Public Use
  Company Number: None

PATIENT
  Age: 71 Year
  Sex: Female

DRUGS (2)
  1. OMNIPAQUE [Suspect]
     Active Substance: IOHEXOL
  2. SENSORCAINE [Suspect]
     Active Substance: BUPIVACAINE HYDROCHLORIDE

REACTIONS (1)
  - Blood culture negative [None]

NARRATIVE: CASE EVENT DATE: 20190421
